FAERS Safety Report 15907135 (Version 2)
Quarter: 2019Q1

REPORT INFORMATION
  Report Type: Spontaneous
  Country: US (occurrence: US)
  Receive Date: 20190204
  Receipt Date: 20190212
  Transmission Date: 20190417
  Serious: No
  Sender: FDA-Public Use
  Company Number: US-PFIZER INC-2019041341

PATIENT
  Age: 95 Year
  Sex: Female
  Weight: 67.57 kg

DRUGS (1)
  1. LYRICA [Suspect]
     Active Substance: PREGABALIN
     Indication: NEUROPATHY PERIPHERAL
     Dosage: 150 MG, 3X/DAY

REACTIONS (3)
  - Paraesthesia [Unknown]
  - Condition aggravated [Unknown]
  - Hypoaesthesia [Unknown]
